FAERS Safety Report 5417953-5 (Version None)
Quarter: 2007Q3

REPORT INFORMATION
  Report Type: 
  Country: None (occurrence: None)
  Receive Date: 20070815
  Receipt Date: 20070806
  Transmission Date: 20080115
  Serious: Yes (Hospitalization)
  Sender: FDA-Public Use
  Company Number: 236487K07USA

PATIENT
  Age: 53 Year
  Sex: Male

DRUGS (4)
  1. REBIF [Suspect]
     Indication: MULTIPLE SCLEROSIS
     Dosage: 44 MCG, 3 IN 1 WEEKS, SUBCUTANEOUS
     Route: 058
     Dates: start: 20061206
  2. UNSPECIFIED STOOL SOFTENERS (DOCUSATE SODIUM) [Concomitant]
  3. DILAUDID [Concomitant]
  4. BACLOFEN [Concomitant]

REACTIONS (2)
  - FAECALOMA [None]
  - WEIGHT DECREASED [None]
